FAERS Safety Report 4559954-5 (Version None)
Quarter: 2005Q1

REPORT INFORMATION
  Report Type: 
  Country: None (occurrence: None)
  Receive Date: 20050120
  Receipt Date: 20050120
  Transmission Date: 20050727
  Serious: Yes (Hospitalization)
  Sender: FDA-Public Use
  Company Number: None

PATIENT
  Age: 55 Year
  Sex: Male

DRUGS (10)
  1. REMICADE [Suspect]
     Indication: CROHN'S DISEASE
  2. MESALAMINE [Concomitant]
  3. 6MP [Concomitant]
  4. APAP TAB [Concomitant]
  5. OMEPRAZOLE [Concomitant]
  6. PREDNISONE [Concomitant]
  7. TPN [Concomitant]
  8. MORPHINE [Concomitant]
  9. CASPOFUNGIN [Concomitant]
  10. VANCOMYCIN [Concomitant]

REACTIONS (5)
  - FUNGAEMIA [None]
  - FUNGAL INFECTION [None]
  - NEUTROPENIA [None]
  - PYREXIA [None]
  - THROMBOPHLEBITIS [None]
